FAERS Safety Report 4519035-3 (Version None)
Quarter: 2004Q4

REPORT INFORMATION
  Report Type: 
  Country: None (occurrence: None)
  Receive Date: 20041201
  Receipt Date: 20041122
  Transmission Date: 20050328
  Serious: Yes (Life-Threatening)
  Sender: FDA-Public Use
  Company Number: 2004GB02522

PATIENT
  Age: 46 Year
  Sex: Male
  Weight: 76.2043 kg

DRUGS (3)
  1. SEROQUEL [Suspect]
     Indication: PSYCHOTIC DISORDER
     Dosage: 250 MG DAILY PO
     Route: 048
     Dates: start: 20040723
  2. SEROQUEL [Suspect]
     Indication: PSYCHOTIC DISORDER
     Dosage: 600 MG DAILY PO
     Route: 048
  3. SEROQUEL [Suspect]
     Indication: PSYCHOTIC DISORDER
     Dosage: 300 MG DAILY PO
     Route: 048
     Dates: end: 20041028

REACTIONS (4)
  - CONDITION AGGRAVATED [None]
  - EPILEPSY [None]
  - PALPITATIONS [None]
  - TACHYCARDIA [None]
